FAERS Safety Report 24587547 (Version 2)
Quarter: 2024Q4

REPORT INFORMATION
  Report Type: Spontaneous
  Country: GR (occurrence: GR)
  Receive Date: 20241107
  Receipt Date: 20241122
  Transmission Date: 20250115
  Serious: Yes (Death, Life-Threatening, Hospitalization, Other)
  Sender: ALKEM
  Company Number: None

PATIENT
  Age: 48 Year
  Sex: Female

DRUGS (11)
  1. LINEZOLID [Suspect]
     Active Substance: LINEZOLID
     Indication: Pulmonary tuberculosis
     Dosage: 600 MILLIGRAMS, ONCE A DAY
     Route: 065
  2. AMIKACIN [Suspect]
     Active Substance: AMIKACIN
     Indication: Pulmonary tuberculosis
     Dosage: UNK
     Route: 065
  3. AMIKACIN [Suspect]
     Active Substance: AMIKACIN
     Dosage: 750 MILLIGRAMS, ONCE A DAY
     Route: 065
  4. BEDAQUILINE [Suspect]
     Active Substance: BEDAQUILINE
     Indication: Pulmonary tuberculosis
     Dosage: UNK
     Route: 065
  5. BEDAQUILINE [Suspect]
     Active Substance: BEDAQUILINE
     Dosage: 400 MILLIGRAMS, ONCE A DAY
     Route: 065
  6. BEDAQUILINE [Suspect]
     Active Substance: BEDAQUILINE
     Dosage: 200 MILLIGRAMS, 3 TIMES PER WEEK
     Route: 065
  7. CYCLOSERINE [Suspect]
     Active Substance: CYCLOSERINE
     Indication: Pulmonary tuberculosis
     Dosage: UNK
     Route: 065
  8. CYCLOSERINE [Suspect]
     Active Substance: CYCLOSERINE
     Dosage: 250 MILLIGRAMS, TWICE A DAY PER TWO WEEKS
     Route: 065
  9. CYCLOSERINE [Suspect]
     Active Substance: CYCLOSERINE
     Dosage: 500 MILLIGRAMS, TWICE A DAY
     Route: 065
  10. PRETOMANID [Suspect]
     Active Substance: PRETOMANID
     Indication: Pulmonary tuberculosis
     Dosage: UNK
     Route: 065
  11. PRETOMANID [Suspect]
     Active Substance: PRETOMANID
     Dosage: 200 MILLIGRAMS, ONCE A DAY
     Route: 048

REACTIONS (4)
  - Pneumonia klebsiella [Fatal]
  - Septic shock [Fatal]
  - Myocarditis [Recovered/Resolved]
  - Off label use [Unknown]
